FAERS Safety Report 24888071 (Version 1)
Quarter: 2025Q1

REPORT INFORMATION
  Report Type: Report from Study
  Country: US (occurrence: US)
  Receive Date: 20250127
  Receipt Date: 20250127
  Transmission Date: 20250409
  Serious: Yes (Other)
  Sender: GILEAD
  Company Number: US-GILEAD-2024-0695368

PATIENT
  Sex: Female

DRUGS (2)
  1. AMBRISENTAN [Suspect]
     Active Substance: AMBRISENTAN
     Indication: Idiopathic pulmonary fibrosis
     Dosage: 10 MG, QD
     Route: 065
     Dates: start: 20220328
  2. AMBRISENTAN [Suspect]
     Active Substance: AMBRISENTAN
     Indication: Pulmonary arterial hypertension

REACTIONS (8)
  - Blindness [Unknown]
  - Balance disorder [Unknown]
  - Rhinorrhoea [Unknown]
  - Fall [Recovered/Resolved]
  - Feeling abnormal [Unknown]
  - Peripheral swelling [Recovering/Resolving]
  - Seasonal allergy [Unknown]
  - Arthritis [Unknown]
